FAERS Safety Report 23409079 (Version 1)
Quarter: 2024Q1

REPORT INFORMATION
  Report Type: Spontaneous
  Country: US (occurrence: US)
  Receive Date: 20240117
  Receipt Date: 20240117
  Transmission Date: 20240410
  Serious: Yes (Life-Threatening, Hospitalization, Other)
  Sender: FDA-Public Use
  Company Number: US-APOTEX-2024AP001036

PATIENT
  Age: 81 Year
  Sex: Male

DRUGS (9)
  1. ACYCLOVIR [Suspect]
     Active Substance: ACYCLOVIR
     Indication: Prophylactic chemotherapy
     Dosage: 400 MILLIGRAM, TWICE
     Route: 065
  2. CIPROFLOXACIN [Suspect]
     Active Substance: CIPROFLOXACIN
     Indication: Anti-infective therapy
     Dosage: 500 (UNIT UNSPECIFED), BID
     Route: 065
  3. CIPROFLOXACIN [Suspect]
     Active Substance: CIPROFLOXACIN
     Indication: Prophylactic chemotherapy
  4. POSACONAZOLE [Suspect]
     Active Substance: POSACONAZOLE
     Indication: Anti-infective therapy
     Dosage: 300 (UNIT UNSPECIFIED), QD
     Route: 065
  5. POSACONAZOLE [Suspect]
     Active Substance: POSACONAZOLE
     Indication: Prophylactic chemotherapy
  6. AMIODARONE [Suspect]
     Active Substance: AMIODARONE
     Indication: Atrial fibrillation
     Dosage: 200 MILLIGRAM, QD
     Route: 065
  7. AMIODARONE [Suspect]
     Active Substance: AMIODARONE
     Indication: Prophylactic chemotherapy
  8. TOPROL XL [Suspect]
     Active Substance: METOPROLOL SUCCINATE
     Indication: Prophylactic chemotherapy
     Dosage: 50 MILLIGRAM, QD
     Route: 065
  9. VENETOCLAX [Suspect]
     Active Substance: VENETOCLAX
     Indication: Acute myeloid leukaemia
     Dosage: 400 MILLIGRAM, QD
     Route: 065

REACTIONS (7)
  - Arrhythmia [Unknown]
  - Hypokalaemia [Recovering/Resolving]
  - Hypomagnesaemia [Unknown]
  - Torsade de pointes [Unknown]
  - Sinus bradycardia [Unknown]
  - Electrocardiogram QT prolonged [Recovered/Resolved]
  - Ventricular extrasystoles [Unknown]
